FAERS Safety Report 5418937-3 (Version None)
Quarter: 2007Q3

REPORT INFORMATION
  Report Type: 
  Country: None (occurrence: None)
  Receive Date: 20070718
  Receipt Date: 20061213
  Transmission Date: 20080115
  Serious: Yes (Hospitalization, Other)
  Sender: FDA-Public Use
  Company Number: 2006105750

PATIENT
  Age: 52 Year
  Sex: Male

DRUGS (2)
  1. CELEBREX [Suspect]
     Indication: ARTHRITIS
     Dosage: (200 MG, 1-2 TIMES DAILY)
     Dates: start: 20011106
  2. CELEBREX [Suspect]
     Indication: ARTHROPATHY
     Dosage: (200 MG, 1-2 TIMES DAILY)
     Dates: start: 20011106

REACTIONS (1)
  - MYOCARDIAL INFARCTION [None]
